FAERS Safety Report 8334184-X (Version None)
Quarter: 2012Q1

REPORT INFORMATION
  Report Type: 
  Country: None (occurrence: None)
  Receive Date: 20120329
  Receipt Date: 20110301
  Transmission Date: 20120608
  Serious: Yes (Life-Threatening)
  Sender: FDA-Public Use
  Company Number: WAES 1103USA00278

PATIENT

DRUGS (1)
  1. FOSAPREPITANT DIMEGLUMINE [Suspect]
     Indication: CHEMOTHERAPY
     Dosage: 150 MG/1X/IV
     Route: 042
     Dates: start: 20110222, end: 20110222

REACTIONS (1)
  - BLOOD PRESSURE DECREASED [None]
